FAERS Safety Report 8127511-X (Version None)
Quarter: 2012Q1

REPORT INFORMATION
  Report Type: 
  Country: None (occurrence: None)
  Receive Date: 20120210
  Receipt Date: 20120203
  Transmission Date: 20120608
  Serious: Yes (Hospitalization)
  Sender: FDA-Public Use
  Company Number: US-AMGEN-USASP2012007547

PATIENT
  Age: 69 Year
  Sex: Female

DRUGS (2)
  1. REMICADE [Concomitant]
  2. ENBREL [Suspect]
     Indication: RHEUMATOID ARTHRITIS
     Dosage: 50 MG, QWK
     Dates: start: 20020101

REACTIONS (8)
  - HYPOTENSION [None]
  - INCONTINENCE [None]
  - RENAL DISORDER [None]
  - MYOCARDIAL INFARCTION [None]
  - DRUG DEPENDENCE [None]
  - GAIT DISTURBANCE [None]
  - FALL [None]
  - THERAPEUTIC RESPONSE DECREASED [None]
